FAERS Safety Report 9205620 (Version 2)
Quarter: 2014Q2

REPORT INFORMATION
  Report Type: Spontaneous
  Country: US (occurrence: US)
  Receive Date: 20130403
  Receipt Date: 20140425
  Transmission Date: 20141212
  Serious: No
  Sender: FDA-Public Use
  Company Number: US-BIOGENIDEC-2013BI028572

PATIENT
  Age: 42 Year
  Sex: Female

DRUGS (2)
  1. TYSABRI [Suspect]
     Indication: MULTIPLE SCLEROSIS
     Route: 042
     Dates: start: 20121128, end: 20130123
  2. BENADRYL [Concomitant]
     Dates: start: 201301, end: 201301

REACTIONS (3)
  - Groin pain [Recovered/Resolved]
  - Kidney infection [Recovered/Resolved]
  - Arthralgia [Recovered/Resolved]
